FAERS Safety Report 7740633-8 (Version None)
Quarter: 2011Q3

REPORT INFORMATION
  Report Type: 
  Country: None (occurrence: None)
  Receive Date: 20110909
  Receipt Date: 20110902
  Transmission Date: 20111222
  Serious: Yes (Hospitalization)
  Sender: FDA-Public Use
  Company Number: US-ALEXION-A201101267

PATIENT
  Sex: Female

DRUGS (2)
  1. DESFERAL [Concomitant]
     Indication: IRON OVERLOAD
     Dosage: UNK 3 X WEEK
  2. SOLIRIS [Suspect]
     Indication: PAROXYSMAL NOCTURNAL HAEMOGLOBINURIA
     Dosage: UNK
     Route: 042

REACTIONS (7)
  - HERPES ZOSTER [None]
  - PYREXIA [None]
  - SKIN INFECTION [None]
  - CHILLS [None]
  - FURUNCLE [None]
  - ASTHENIA [None]
  - PAIN IN EXTREMITY [None]
